FAERS Safety Report 6534629-1 (Version None)
Quarter: 2010Q1

REPORT INFORMATION
  Report Type: 
  Country: None (occurrence: None)
  Receive Date: 20100112
  Receipt Date: 20100107
  Transmission Date: 20100710
  Serious: Yes (Death)
  Sender: FDA-Public Use
  Company Number: B0624685A

PATIENT
  Sex: Female

DRUGS (12)
  1. RELENZA [Suspect]
     Route: 065
  2. TAMIFLU [Suspect]
     Dosage: 75MG FOUR TIMES PER DAY
     Route: 048
     Dates: start: 20091024, end: 20091111
  3. CASPOFUNGIN ACETATE [Concomitant]
     Route: 042
     Dates: start: 20091107, end: 20091109
  4. MERONEM [Concomitant]
     Dosage: 2G THREE TIMES PER DAY
     Route: 042
     Dates: start: 20091101, end: 20091108
  5. METRONIDAZOLE [Concomitant]
     Dosage: 500MG THREE TIMES PER DAY
     Route: 042
     Dates: start: 20091102, end: 20091107
  6. ERYTHROMYCIN [Concomitant]
     Dosage: 250MG THREE TIMES PER DAY
     Route: 042
     Dates: start: 20091102, end: 20091107
  7. SOLU-MEDROL [Concomitant]
     Dosage: 80MG TWICE PER DAY
     Dates: start: 20091105
  8. CLARITHROMYCIN [Concomitant]
     Dosage: 375MG TWICE PER DAY
     Route: 042
     Dates: start: 20091104, end: 20091107
  9. ACETAMINOPHEN [Concomitant]
     Dosage: 1G FOUR TIMES PER DAY
     Route: 048
     Dates: end: 20091107
  10. PRIMPERAN TAB [Concomitant]
     Dosage: 10MG THREE TIMES PER DAY
     Route: 042
     Dates: start: 20091101, end: 20091108
  11. DIFLUCAN [Concomitant]
     Route: 042
     Dates: start: 20091102, end: 20091103
  12. UNKNOWN [Concomitant]
     Route: 042
     Dates: start: 20091104, end: 20091107

REACTIONS (2)
  - DISSEMINATED INTRAVASCULAR COAGULATION [None]
  - HEPATIC FAILURE [None]
